FAERS Safety Report 11021414 (Version 1)
Quarter: 2015Q2

REPORT INFORMATION
  Report Type: Spontaneous
  Country: US (occurrence: US)
  Receive Date: 20150413
  Receipt Date: 20150413
  Transmission Date: 20150821
  Serious: Yes (Hospitalization, Other)
  Sender: FDA-Public Use
  Company Number: US-ACTAVIS-2015-07124

PATIENT
  Age: 67 Year
  Sex: Female

DRUGS (13)
  1. VANCOMYCIN [Concomitant]
     Active Substance: VANCOMYCIN
     Indication: STREPTOCOCCAL INFECTION
  2. CEFTAZIDIME. [Concomitant]
     Active Substance: CEFTAZIDIME
     Indication: ENDOPHTHALMITIS
     Dosage: UNK
     Route: 065
  3. AMLODIPINE [Concomitant]
     Active Substance: AMLODIPINE BESYLATE
     Indication: HYPERTENSION
     Dosage: UNK
     Route: 065
  4. VANCOMYCIN [Concomitant]
     Active Substance: VANCOMYCIN
     Indication: ENDOPHTHALMITIS
     Dosage: UNK
     Route: 031
  5. PREDNISONE. [Concomitant]
     Active Substance: PREDNISONE
     Indication: STREPTOCOCCAL INFECTION
  6. METOPROLOL [Concomitant]
     Active Substance: METOPROLOL
     Indication: HYPERTENSION
     Dosage: UNK
     Route: 065
  7. LEVOTHYROXINE [Concomitant]
     Active Substance: LEVOTHYROXINE
     Indication: HYPOTHYROIDISM
     Dosage: UNK
     Route: 065
  8. LEVOFLOXACIN (WATSON LABORATORIES) [Suspect]
     Active Substance: LEVOFLOXACIN
     Indication: STREPTOCOCCAL INFECTION
     Dosage: 500 MG, DAILY
     Route: 042
  9. PREDNISONE. [Concomitant]
     Active Substance: PREDNISONE
     Indication: ENDOPHTHALMITIS
     Dosage: 60 MG, BID
     Route: 048
  10. LEVOFLOXACIN (WATSON LABORATORIES) [Suspect]
     Active Substance: LEVOFLOXACIN
     Indication: ENDOPHTHALMITIS
     Dosage: 500 MG, DAILY
     Route: 048
  11. CEFTAZIDIME. [Concomitant]
     Active Substance: CEFTAZIDIME
     Indication: STREPTOCOCCAL INFECTION
  12. MOXIFLOXACIN [Concomitant]
     Active Substance: MOXIFLOXACIN
     Indication: ENDOPHTHALMITIS
     Dosage: UNK
     Route: 031
  13. MOXIFLOXACIN [Concomitant]
     Active Substance: MOXIFLOXACIN
     Indication: STREPTOCOCCAL INFECTION

REACTIONS (4)
  - Vanishing bile duct syndrome [Recovering/Resolving]
  - Cholestasis [Recovering/Resolving]
  - Hepatic fibrosis [Unknown]
  - Alopecia [Recovered/Resolved]
